FAERS Safety Report 8895855 (Version 1)
Quarter: 2012Q4

REPORT INFORMATION
  Report Type: 
  Country: GB (occurrence: GB)
  Receive Date: 20121108
  Receipt Date: 20121108
  Transmission Date: 20130627
  Serious: Yes (Death)
  Sender: FDA-Public Use
  Company Number: GB-SANOFI-AVENTIS-2012SA080376

PATIENT
  Age: 54 Year
  Sex: Female

DRUGS (4)
  1. ENOXAPARIN SODIUM [Suspect]
     Indication: ACUTE MYOCARDIAL INFARCTION, OF OTHER INFERIOR WALL
     Dosage: dose: 3000 units
     Route: 040
  2. ENOXAPARIN SODIUM [Suspect]
     Indication: ACUTE MYOCARDIAL INFARCTION, OF OTHER INFERIOR WALL
     Route: 058
  3. TENECTEPLASE [Suspect]
     Indication: ACUTE MYOCARDIAL INFARCTION, OF OTHER INFERIOR WALL
     Route: 065
  4. ANTIBIOTICS [Concomitant]
     Indication: ENDOCARDITIS INFECTIVE

REACTIONS (4)
  - Subarachnoid haemorrhage [Fatal]
  - Intraventricular haemorrhage [Fatal]
  - Hemiparesis [Fatal]
  - Depressed level of consciousness [Unknown]
